FAERS Safety Report 23217228 (Version 2)
Quarter: 2023Q4

REPORT INFORMATION
  Report Type: Report from Study
  Country: IL (occurrence: IL)
  Receive Date: 20231122
  Receipt Date: 20231128
  Transmission Date: 20240110
  Serious: Yes (Other)
  Sender: FDA-Public Use
  Company Number: IL-GILEAD-2023-0648085

PATIENT
  Age: 86 Year
  Sex: Female
  Weight: 68 kg

DRUGS (3)
  1. SACITUZUMAB GOVITECAN-HZIY [Suspect]
     Active Substance: SACITUZUMAB GOVITECAN-HZIY
     Indication: Triple negative breast cancer
     Dosage: 680 MG
     Route: 042
     Dates: start: 20230823
  2. SACITUZUMAB GOVITECAN-HZIY [Suspect]
     Active Substance: SACITUZUMAB GOVITECAN-HZIY
     Dosage: 600 MG
     Route: 042
  3. SACITUZUMAB GOVITECAN-HZIY [Suspect]
     Active Substance: SACITUZUMAB GOVITECAN-HZIY
     Dosage: UNK
     Route: 042
     Dates: end: 20231120

REACTIONS (5)
  - Neuropathy peripheral [Unknown]
  - Neutropenia [Recovered/Resolved]
  - Disease progression [Unknown]
  - Thrombocytopenia [Recovered/Resolved]
  - Fatigue [Recovered/Resolved]

NARRATIVE: CASE EVENT DATE: 20230912
